FAERS Safety Report 9102954 (Version 1)
Quarter: 2013Q1

REPORT INFORMATION
  Report Type: Spontaneous
  Country: US (occurrence: US)
  Receive Date: 20130219
  Receipt Date: 20130219
  Transmission Date: 20140127
  Serious: Yes (Hospitalization)
  Sender: FDA-Public Use
  Company Number: US-ASTRAZENECA-2010SE45248

PATIENT
  Age: 73 Year
  Sex: Female
  Weight: 99.8 kg

DRUGS (6)
  1. SYMBICORT PMDI [Suspect]
     Dosage: 80/4.5, UNKNOWN FREQUENCY
     Route: 055
     Dates: start: 2007
  2. SPIRIVA [Concomitant]
  3. ALBUTEROL [Concomitant]
  4. VERAPAMIL [Concomitant]
  5. ASA [Concomitant]
  6. COZAAR [Concomitant]

REACTIONS (4)
  - Chronic obstructive pulmonary disease [Unknown]
  - Candida infection [Unknown]
  - Drug ineffective [Unknown]
  - Pneumonia [Unknown]
